FAERS Safety Report 9276220 (Version 2)
Quarter: 2013Q2

REPORT INFORMATION
  Report Type: Spontaneous
  Country: US (occurrence: US)
  Receive Date: 20130507
  Receipt Date: 20130621
  Transmission Date: 20140414
  Serious: Yes (Other)
  Sender: FDA-Public Use
  Company Number: US-PFIZER INC-2013140920

PATIENT
  Age: 74 Year
  Sex: Male

DRUGS (10)
  1. SUTENT [Suspect]
     Dosage: 50 MG, UNK (FOUR WEEKS ON, TWO WEEKS OFF)
     Dates: start: 20110423
  2. SUTENT [Suspect]
     Dosage: 50 MG, 1X/DAY (DAILY X4 WEEKS, THEN TWO WEEKS OFF. HE WILL RETURN IN SIX WEEKS)
     Dates: start: 201105
  3. SUTENT [Suspect]
     Dosage: UNK
     Dates: start: 20130112
  4. SUTENT [Suspect]
     Dosage: UNK (FOR FOUR WEEKS)
     Dates: start: 20120908
  5. SUTENT [Suspect]
     Dosage: UNK
     Dates: start: 20120726
  6. METOPROLOL [Concomitant]
     Dosage: UNK
  7. NIASPAN ER [Concomitant]
     Dosage: UNK
  8. FLOMAX [Concomitant]
     Dosage: UNK
  9. ASA [Concomitant]
     Dosage: UNK
  10. LEVOTHYROXINE [Concomitant]
     Dosage: 50 UG, 1X/DAY

REACTIONS (5)
  - Blood pressure increased [Not Recovered/Not Resolved]
  - Hypothyroidism [Not Recovered/Not Resolved]
  - Rash [Unknown]
  - Diarrhoea [Recovering/Resolving]
  - Pruritus [Unknown]
